FAERS Safety Report 9059861 (Version 2)
Quarter: 2013Q2

REPORT INFORMATION
  Report Type: Spontaneous
  Country: US (occurrence: US)
  Receive Date: 20130212
  Receipt Date: 20130523
  Transmission Date: 20140414
  Serious: No
  Sender: FDA-Public Use
  Company Number: US-009507513-1302USA004587

PATIENT
  Age: 61 Year
  Sex: Female
  Weight: 58.96 kg

DRUGS (6)
  1. ASMANEX TWISTHALER [Suspect]
     Indication: ASTHMA
     Dosage: UNK
     Route: 055
     Dates: start: 201209
  2. ASMANEX TWISTHALER [Suspect]
     Dosage: 4 PUFF: DAILY DOSE
     Route: 055
     Dates: start: 20130205, end: 20130215
  3. SINGULAIR [Concomitant]
     Indication: ASTHMA
     Dosage: 1 DF, QD
     Route: 048
  4. PREMPRO [Concomitant]
     Indication: HORMONE REPLACEMENT THERAPY
     Dosage: 1 DF, QD
     Route: 048
  5. MINOCYCLINE [Concomitant]
     Indication: ACNE
     Dosage: 1 DF, QD
     Route: 048
  6. CELEBREX [Concomitant]
     Indication: PAIN
     Dosage: 2 DOSE DALIY
     Route: 048

REACTIONS (6)
  - Drug ineffective [Recovered/Resolved]
  - Drug dose omission [Unknown]
  - Product taste abnormal [Unknown]
  - Product quality issue [Unknown]
  - Product taste abnormal [Unknown]
  - No adverse event [Unknown]
